FAERS Safety Report 8106258-X (Version None)
Quarter: 2012Q1

REPORT INFORMATION
  Report Type: 
  Country: None (occurrence: None)
  Receive Date: 20120202
  Receipt Date: 20111214
  Transmission Date: 20120608
  Serious: No
  Sender: FDA-Public Use
  Company Number: CA-JNJFOC-20120111081

PATIENT
  Sex: Male
  Weight: 93 kg

DRUGS (5)
  1. HYDROCORTISONE [Concomitant]
     Route: 065
  2. BENADRYL [Concomitant]
     Route: 042
  3. REMICADE [Suspect]
     Indication: CROHN'S DISEASE
     Route: 042
     Dates: start: 20111208
  4. GRAVOL TAB [Concomitant]
     Route: 065
  5. ACETAMINOPHEN [Concomitant]
     Route: 065

REACTIONS (1)
  - VARICELLA [None]
